FAERS Safety Report 4334731-9 (Version None)
Quarter: 2004Q2

REPORT INFORMATION
  Report Type: 
  Country: None (occurrence: None)
  Receive Date: 20040407
  Receipt Date: 20040407
  Transmission Date: 20050107
  Serious: Yes (Hospitalization)
  Sender: FDA-Public Use
  Company Number: None

PATIENT
  Sex: Male
  Weight: 91.3 kg

DRUGS (6)
  1. GLEEVEC [Suspect]
     Indication: OLIGODENDROGLIOMA
     Dosage: 500 MG PO BID
     Route: 048
     Dates: start: 20040311, end: 20040331
  2. HYDROXYUREA [Suspect]
     Indication: OLIGODENDROGLIOMA
     Dosage: 500 MG PO BID
     Route: 048
     Dates: start: 20040311, end: 20040331
  3. KEPPRA [Concomitant]
  4. TRILEPTAL [Concomitant]
  5. LEXAPRO [Concomitant]
  6. AMBIEN [Concomitant]

REACTIONS (6)
  - ANAEMIA [None]
  - ATELECTASIS [None]
  - CONVULSION [None]
  - DRUG LEVEL INCREASED [None]
  - THROMBOCYTOPENIA [None]
  - WHITE BLOOD CELL COUNT INCREASED [None]
